FAERS Safety Report 13840332 (Version 1)
Quarter: 2017Q3

REPORT INFORMATION
  Report Type: Spontaneous
  Country: US (occurrence: US)
  Receive Date: 20170807
  Receipt Date: 20170807
  Transmission Date: 20171127
  Serious: No
  Sender: FDA-Public Use
  Company Number: US-AEGERION PHARMACEUTICAL, INC-AEGR003149

PATIENT
  Age: 12 Year
  Sex: Female
  Weight: 66.5 kg

DRUGS (12)
  1. HUMULIN R [Concomitant]
     Active Substance: INSULIN HUMAN
     Dosage: 450 UNITS, QD
     Dates: start: 20151013, end: 20160428
  2. FENOFIBRATE. [Concomitant]
     Active Substance: FENOFIBRATE
     Indication: HYPERTRIGLYCERIDAEMIA
     Dosage: 145 MG, QD
     Dates: start: 20170302
  3. METRELEPTIN [Suspect]
     Active Substance: METRELEPTIN
     Dosage: 5 MG, Q12HRS
     Route: 058
  4. METFORMIN [Concomitant]
     Active Substance: METFORMIN HYDROCHLORIDE
     Dosage: 1500 MG, QD
     Dates: start: 20170302
  5. FISH OIL [Concomitant]
     Active Substance: FISH OIL
     Indication: BLOOD TRIGLYCERIDES INCREASED
     Dosage: 2 G, DAILY BEFORE BREAKFAST
  6. TRAZODONE [Concomitant]
     Active Substance: TRAZODONE HYDROCHLORIDE
     Indication: ANXIETY
     Dosage: 50 MG, QD AT BEDTIME
     Dates: start: 20170302
  7. METRELEPTIN [Suspect]
     Active Substance: METRELEPTIN
     Indication: CONGENITAL GENERALISED LIPODYSTROPHY
     Dosage: 5 MG, QD
     Route: 058
     Dates: start: 20150401
  8. HUMULIN R [Concomitant]
     Active Substance: INSULIN HUMAN
     Indication: CONGENITAL GENERALISED LIPODYSTROPHY
     Dosage: 200 UNITS, QD
     Dates: start: 20150630, end: 20151013
  9. HUMULIN R [Concomitant]
     Active Substance: INSULIN HUMAN
     Dosage: 900 UNITS, QD
     Dates: start: 20160428, end: 20160804
  10. METFORMIN [Concomitant]
     Active Substance: METFORMIN HYDROCHLORIDE
     Indication: INSULIN RESISTANCE
     Dosage: 500 MG, QD
     Dates: end: 20150630
  11. METFORMIN [Concomitant]
     Active Substance: METFORMIN HYDROCHLORIDE
     Dosage: 500 MG, BID
     Dates: start: 20150630, end: 20170302
  12. HUMULIN R [Concomitant]
     Active Substance: INSULIN HUMAN
     Dosage: 1200 UNITS, QD
     Dates: start: 20160804

REACTIONS (1)
  - Abdominal pain upper [Recovered/Resolved]

NARRATIVE: CASE EVENT DATE: 20170226
